FAERS Safety Report 4358265-0 (Version None)
Quarter: 2004Q2

REPORT INFORMATION
  Report Type: 
  Country: None (occurrence: None)
  Receive Date: 20040510
  Receipt Date: 20040427
  Transmission Date: 20050107
  Serious: Yes (Hospitalization, Other)
  Sender: FDA-Public Use
  Company Number: DEWYE425826NOV03

PATIENT
  Age: 76 Year
  Sex: Female

DRUGS (12)
  1. TREVILOR (VENLAFAXINE HYDROCHLORIDE, TABLET, 0) [Suspect]
     Dosage: SEE IMAGE ORAL
     Route: 048
     Dates: start: 20030512, end: 20030519
  2. TREVILOR (VENLAFAXINE HYDROCHLORIDE, TABLET, 0) [Suspect]
     Dosage: SEE IMAGE ORAL
     Route: 048
     Dates: start: 20030520, end: 20030530
  3. TREVILOR (VENLAFAXINE HYDROCHLORIDE, TABLET, 0) [Suspect]
     Dosage: SEE IMAGE ORAL
     Route: 048
     Dates: start: 20030531, end: 20030608
  4. NEXIUM [Suspect]
     Dosage: 20 MG ORAL
     Route: 048
     Dates: start: 20030513
  5. SPIRONOLACTONE [Suspect]
     Dosage: 25 MG ORAL
     Route: 048
     Dates: start: 20030514
  6. METOCLOPRAMIDE [Concomitant]
  7. ATACAND [Concomitant]
  8. CARVEDILOL [Concomitant]
  9. MAGNESIUM (MAGNESIUM) [Concomitant]
  10. KALINOR (POTASSIUM CHLORIDE) [Concomitant]
  11. OXAZEPAM [Concomitant]
  12. ACETAMINOPHEN [Concomitant]

REACTIONS (5)
  - BLOOD OSMOLARITY DECREASED [None]
  - DRUG INTERACTION [None]
  - HYPONATRAEMIA [None]
  - URINE POTASSIUM DECREASED [None]
  - URINE SODIUM DECREASED [None]
